FAERS Safety Report 15449017 (Version 1)
Quarter: 2018Q3

REPORT INFORMATION
  Report Type: Spontaneous
  Country: US (occurrence: US)
  Receive Date: 20180926
  Receipt Date: 20180926
  Transmission Date: 20181010
  Serious: Yes (Other)
  Sender: FDA-Public Use
  Company Number: None

PATIENT
  Age: 32 Year
  Sex: Female
  Weight: 110.25 kg

DRUGS (1)
  1. BUTRANS [Suspect]
     Active Substance: BUPRENORPHINE
     Indication: BACK PAIN
     Dosage: 1 PATCH(ES);OTHER FREQUENCY:7 DAYS;?
     Route: 061

REACTIONS (5)
  - Chest discomfort [None]
  - Panic attack [None]
  - Dyspnoea [None]
  - Muscle tightness [None]
  - Throat tightness [None]

NARRATIVE: CASE EVENT DATE: 20180807
